FAERS Safety Report 18618308 (Version 1)
Quarter: 2020Q4

REPORT INFORMATION
  Report Type: Spontaneous
  Country: NL (occurrence: NL)
  Receive Date: 20201215
  Receipt Date: 20201215
  Transmission Date: 20210114
  Serious: Yes (Death)
  Sender: FDA-Public Use
  Company Number: NL-TEVA-2020-NL-1857491

PATIENT
  Sex: Male
  Weight: 80 kg

DRUGS (2)
  1. DICLOFENAC-NATRIUM INJVLST 25MG/ML / BRAND NAME NOT SPECIFIED [Suspect]
     Active Substance: DICLOFENAC SODIUM
     Indication: PRODUCT USED FOR UNKNOWN INDICATION
     Dosage: 25 MG / ML, THERAPY END DATE: ASKED BUT UNKNOWN
     Route: 065
     Dates: start: 20200901
  2. MORFINE INJVLST 10MG/ML / BRAND NAME NOT SPECIFIED [Suspect]
     Active Substance: MORPHINE
     Indication: RENAL COLIC
     Dosage: ONCE 10 MG S.C, THERAPY END DATE: ASKED BUT UNKNOWN
     Route: 065
     Dates: start: 20200901

REACTIONS (2)
  - Pruritus allergic [Not Recovered/Not Resolved]
  - Shock [Fatal]
